FAERS Safety Report 16717222 (Version 1)
Quarter: 2019Q3

REPORT INFORMATION
  Report Type: Spontaneous
  Country: FR (occurrence: FR)
  Receive Date: 20190819
  Receipt Date: 20190819
  Transmission Date: 20191005
  Serious: Yes (Life-Threatening)
  Sender: FDA-Public Use
  Company Number: FR-TEVA-2019-FR-1092678

PATIENT
  Age: 38 Year
  Sex: Female
  Weight: 85.5 kg

DRUGS (9)
  1. CYCLOPHOSPHAMIDE. [Suspect]
     Active Substance: CYCLOPHOSPHAMIDE
     Indication: PLASMA CELL MYELOMA RECURRENT
     Route: 041
     Dates: start: 20190626, end: 20190629
  2. KARDEGIC [Concomitant]
     Active Substance: ASPIRIN DL-LYSINE
  3. ETOPOSIDE (PHOSPHATE D^) [Suspect]
     Active Substance: ETOPOSIDE
     Indication: PLASMA CELL MYELOMA RECURRENT
     Route: 041
     Dates: start: 20190626, end: 20190629
  4. DOXORUBICINE [Suspect]
     Active Substance: DOXORUBICIN
     Indication: PLASMA CELL MYELOMA RECURRENT
     Route: 041
     Dates: start: 20190626, end: 20190629
  5. ENTECAVIR MONOHYDRATE [Concomitant]
     Active Substance: ENTECAVIR
  6. TRAMADOL BASE [Concomitant]
     Active Substance: TRAMADOL
  7. DEXAMETHASONE. [Concomitant]
     Active Substance: DEXAMETHASONE
  8. ALLOPURINOL. [Concomitant]
     Active Substance: ALLOPURINOL
  9. CISPLATINE [Suspect]
     Active Substance: CISPLATIN
     Indication: PLASMA CELL MYELOMA RECURRENT
     Route: 041
     Dates: start: 20190626, end: 20190629

REACTIONS (1)
  - Myocarditis [Recovering/Resolving]

NARRATIVE: CASE EVENT DATE: 20190711
